FAERS Safety Report 12714253 (Version 1)
Quarter: 2016Q3

REPORT INFORMATION
  Report Type: Spontaneous
  Country: US (occurrence: US)
  Receive Date: 20160905
  Receipt Date: 20160905
  Transmission Date: 20161109
  Serious: No
  Sender: FDA-Public Use
  Company Number: US-JAZZ-2016-US-008838

PATIENT
  Sex: Female

DRUGS (39)
  1. XYREM [Suspect]
     Active Substance: SODIUM OXYBATE
     Indication: CHRONIC FATIGUE SYNDROME
     Dosage: 4.5 G, BID
     Route: 048
     Dates: start: 201005, end: 201109
  2. XYREM [Suspect]
     Active Substance: SODIUM OXYBATE
     Dosage: 4.5 G, BID
     Route: 048
     Dates: start: 201201
  3. ESTRADIOL. [Concomitant]
     Active Substance: ESTRADIOL
  4. SONATA [Concomitant]
     Active Substance: ZALEPLON
  5. TOPAMAX [Concomitant]
     Active Substance: TOPIRAMATE
  6. CALCIUM CARBONATE. [Concomitant]
     Active Substance: CALCIUM CARBONATE
  7. COENZYME Q10 [Concomitant]
     Active Substance: UBIDECARENONE
  8. ZYRTEC [Concomitant]
     Active Substance: CETIRIZINE HYDROCHLORIDE
  9. VICODIN [Concomitant]
     Active Substance: ACETAMINOPHEN\HYDROCODONE BITARTRATE
  10. LUNESTA [Concomitant]
     Active Substance: ESZOPICLONE
  11. BUSPIRONE [Concomitant]
     Active Substance: BUSPIRONE HYDROCHLORIDE
  12. TRAZODONE [Concomitant]
     Active Substance: TRAZODONE HYDROCHLORIDE
  13. HYDROXYZINE [Concomitant]
     Active Substance: HYDROXYZINE\HYDROXYZINE HYDROCHLORIDE
  14. ROBAXIN [Concomitant]
     Active Substance: METHOCARBAMOL
  15. XYREM [Suspect]
     Active Substance: SODIUM OXYBATE
     Dosage: 6 G, BID
     Route: 048
     Dates: start: 201109, end: 201201
  16. IMITREX [Concomitant]
     Active Substance: SUMATRIPTAN SUCCINATE
  17. NALTREXONE [Concomitant]
     Active Substance: NALTREXONE
  18. ROZEREM [Concomitant]
     Active Substance: RAMELTEON
  19. CHERATUSSIN AC [Concomitant]
     Active Substance: CODEINE PHOSPHATE\GUAIFENESIN
  20. FISH OIL CONCENTRATE [Concomitant]
  21. GABAPENTIN. [Concomitant]
     Active Substance: GABAPENTIN
  22. DILAUDID [Concomitant]
     Active Substance: HYDROMORPHONE HYDROCHLORIDE
  23. ATIVAN [Concomitant]
     Active Substance: LORAZEPAM
  24. PROGESTERONE. [Concomitant]
     Active Substance: PROGESTERONE
  25. SKELAXIN [Concomitant]
     Active Substance: METAXALONE
  26. TRAMADOL HCL [Concomitant]
     Active Substance: TRAMADOL HYDROCHLORIDE
  27. ALPHA LIPOIC ACID [Concomitant]
     Active Substance: .ALPHA.-LIPOIC ACID
  28. ACETYLCYSTEINE. [Concomitant]
     Active Substance: ACETYLCYSTEINE
  29. ULTRAM [Concomitant]
     Active Substance: TRAMADOL HYDROCHLORIDE
  30. SEROQUEL [Concomitant]
     Active Substance: QUETIAPINE FUMARATE
  31. PERCOCET [Concomitant]
     Active Substance: ACETAMINOPHEN\OXYCODONE HYDROCHLORIDE
  32. CYMBALTA [Concomitant]
     Active Substance: DULOXETINE HYDROCHLORIDE
  33. DOXEPIN [Concomitant]
     Active Substance: DOXEPIN
  34. TYLENOL 8 HR [Concomitant]
     Active Substance: ACETAMINOPHEN
  35. CLONAZEPAM. [Concomitant]
     Active Substance: CLONAZEPAM
  36. SENNA-S [Concomitant]
     Active Substance: DOCUSATE SODIUM\SENNOSIDES
  37. VITAMIN D [Concomitant]
     Active Substance: CHOLECALCIFEROL
  38. IBUPROFEN. [Concomitant]
     Active Substance: IBUPROFEN
  39. ZOLPIDEM [Concomitant]
     Active Substance: ZOLPIDEM\ZOLPIDEM TARTRATE

REACTIONS (1)
  - Blood pressure increased [Unknown]
